FAERS Safety Report 8211112-9 (Version None)
Quarter: 2012Q1

REPORT INFORMATION
  Report Type: 
  Country: None (occurrence: None)
  Receive Date: 20120315
  Receipt Date: 20120312
  Transmission Date: 20120608
  Serious: Yes (Other)
  Sender: FDA-Public Use
  Company Number: PHFR2012IE001466

PATIENT
  Sex: Female

DRUGS (1)
  1. CLOZARIL [Suspect]
     Indication: SCHIZOPHRENIA
     Route: 048
     Dates: start: 20030905

REACTIONS (3)
  - FEELING ABNORMAL [None]
  - CHRONIC OBSTRUCTIVE PULMONARY DISEASE [None]
  - TERMINAL STATE [None]
